FAERS Safety Report 8427360-9 (Version None)
Quarter: 2012Q2

REPORT INFORMATION
  Report Type: 
  Country: None (occurrence: None)
  Receive Date: 20120611
  Receipt Date: 20120608
  Transmission Date: 20120825
  Serious: No
  Sender: FDA-Public Use
  Company Number: US-PFIZER INC-2012138543

PATIENT
  Sex: Male
  Weight: 89.8 kg

DRUGS (3)
  1. LISINOPRIL [Interacting]
     Indication: HYPERTENSION
     Dosage: 12.5 MG, 1X/DAY
  2. AMLODIPINE BESYLATE [Interacting]
     Indication: HYPERTENSION
     Dosage: 5 MG, 2X/DAY
  3. CELEBREX [Suspect]
     Indication: ARTHRITIS
     Dosage: 200 MG, 1X/DAY
     Dates: start: 20120101, end: 20120606

REACTIONS (7)
  - SWELLING [None]
  - FEELING ABNORMAL [None]
  - PLATELET COUNT DECREASED [None]
  - RASH [None]
  - ARTHRALGIA [None]
  - DRUG INTERACTION [None]
  - MUSCULOSKELETAL PAIN [None]
